FAERS Safety Report 12796642 (Version 2)
Quarter: 2016Q4

REPORT INFORMATION
  Report Type: Report from Study
  Country: None (occurrence: DE)
  Receive Date: 20160929
  Receipt Date: 20161117
  Transmission Date: 20170207
  Serious: Yes (Other)
  Sender: FDA-Public Use
  Company Number: DE-ABBVIE-16K-062-1740848-00

PATIENT
  Age: 66 Year
  Sex: Female
  Weight: 71 kg

DRUGS (3)
  1. MTX [Concomitant]
     Active Substance: METHOTREXATE SODIUM
     Indication: PRODUCT USED FOR UNKNOWN INDICATION
  2. ATORVASTATIN [Concomitant]
     Active Substance: ATORVASTATIN
     Indication: PRODUCT USED FOR UNKNOWN INDICATION
  3. HUMIRA [Suspect]
     Active Substance: ADALIMUMAB
     Indication: PRODUCT USED FOR UNKNOWN INDICATION
     Route: 058

REACTIONS (5)
  - Heart valve incompetence [Unknown]
  - Tachycardia [Unknown]
  - Vertigo [Unknown]
  - Hypertension [Unknown]
  - Asthenia [Unknown]
